FAERS Safety Report 5983553-1 (Version None)
Quarter: 2008Q4

REPORT INFORMATION
  Report Type: 
  Country: None (occurrence: None)
  Receive Date: 20081208
  Receipt Date: 20081125
  Transmission Date: 20090506
  Serious: Yes (Hospitalization, Other)
  Sender: FDA-Public Use
  Company Number: US-ROCHE-591368

PATIENT
  Sex: Female
  Weight: 69.4 kg

DRUGS (2)
  1. CAPECITABINE [Suspect]
     Indication: BREAST CANCER
     Dosage: DOSE REPORTED AS: 500 MG X 3 TAB BID + 1- 150 MG BID = 1650 MG BID
     Route: 065
     Dates: start: 20080926, end: 20081010
  2. CAPECITABINE [Suspect]
     Dosage: DOSAGE LOWERED
     Route: 065

REACTIONS (3)
  - DEHYDRATION [None]
  - DIARRHOEA [None]
  - METASTATIC NEOPLASM [None]
